FAERS Safety Report 20633367 (Version 2)
Quarter: 2022Q2

REPORT INFORMATION
  Report Type: Spontaneous
  Country: KR (occurrence: KR)
  Receive Date: 20220324
  Receipt Date: 20220414
  Transmission Date: 20220721
  Serious: Yes (Hospitalization, Other)
  Sender: FDA-Public Use
  Company Number: KR-AMERICAN REGENT INC-2022000766

PATIENT
  Age: 47 Year
  Sex: Female

DRUGS (9)
  1. FERINJECT [Suspect]
     Active Substance: FERRIC CARBOXYMALTOSE
     Indication: Anaemia
     Dosage: 100 MILLIGRAM, SINGLE DILUTED IN 100 ML NORMAL SALINE
     Dates: start: 20220222, end: 20220222
  2. ROXIMAX [CEFUROXIME AXETIL] [Concomitant]
     Indication: Pneumonia
     Route: 065
  3. CEFIXIME [Concomitant]
     Active Substance: CEFIXIME
     Indication: Pneumonia
     Route: 065
  4. LOXOPROFEN [Concomitant]
     Active Substance: LOXOPROFEN
     Indication: Pneumonia
     Route: 065
  5. PENZAL T [Concomitant]
     Indication: Pneumonia
     Route: 065
  6. REBAMIPIDE [Concomitant]
     Active Substance: REBAMIPIDE
     Indication: Pneumonia
     Dosage: UNK
     Route: 065
  7. CHLORPHENIRAMINE MALEATE [Concomitant]
     Active Substance: CHLORPHENIRAMINE MALEATE
     Indication: Pneumonia
     Route: 065
  8. ACETYLCYSTEINE [Concomitant]
     Active Substance: ACETYLCYSTEINE
     Indication: Pneumonia
     Route: 065
  9. LOXOPROFEN SODIUM DIHYDRATE [Concomitant]
     Active Substance: LOXOPROFEN SODIUM DIHYDRATE
     Indication: Pneumonia
     Route: 065

REACTIONS (3)
  - Haematochezia [Recovered/Resolved]
  - Anaemia [Unknown]
  - Cardiac disorder [Unknown]

NARRATIVE: CASE EVENT DATE: 20220101
